FAERS Safety Report 11096947 (Version 1)
Quarter: 2015Q2

REPORT INFORMATION
  Report Type: Spontaneous
  Country: US (occurrence: US)
  Receive Date: 20150507
  Receipt Date: 20150507
  Transmission Date: 20150821
  Serious: Yes (Hospitalization)
  Sender: FDA-Public Use
  Company Number: 2015SP001427

PATIENT
  Age: 84 Year
  Sex: Female
  Weight: 60 kg

DRUGS (5)
  1. BROVANA [Suspect]
     Active Substance: ARFORMOTEROL TARTRATE
     Indication: CHRONIC OBSTRUCTIVE PULMONARY DISEASE
     Route: 055
     Dates: start: 2007, end: 20150424
  2. VITAMIN D3 [Concomitant]
     Active Substance: CHOLECALCIFEROL
     Route: 048
  3. KLONOPIN [Concomitant]
     Active Substance: CLONAZEPAM
     Route: 048
  4. METOPROLOL [Concomitant]
     Active Substance: METOPROLOL
     Indication: BLOOD PRESSURE MANAGEMENT
     Route: 048
  5. ATROVENT [Concomitant]
     Active Substance: IPRATROPIUM BROMIDE
     Dates: start: 201504

REACTIONS (6)
  - Mobility decreased [Not Recovered/Not Resolved]
  - Urinary retention [Not Recovered/Not Resolved]
  - Fall [Recovered/Resolved]
  - Cholelithiasis [Not Recovered/Not Resolved]
  - Constipation [Not Recovered/Not Resolved]
  - Gait disturbance [Not Recovered/Not Resolved]

NARRATIVE: CASE EVENT DATE: 2007
